FAERS Safety Report 7105540-2 (Version None)
Quarter: 2010Q4

REPORT INFORMATION
  Report Type: 
  Country: None (occurrence: None)
  Receive Date: 20101116
  Receipt Date: 20101105
  Transmission Date: 20110411
  Serious: Yes (Other)
  Sender: FDA-Public Use
  Company Number: CN-ROCHE-737606

PATIENT
  Sex: Female
  Weight: 38 kg

DRUGS (6)
  1. CAPECITABINE [Suspect]
     Indication: GASTRIC CANCER
     Dosage: DOSAGE FORM: PELLET, PERMANENTLY DISCONTINUED
     Route: 048
     Dates: start: 20100824, end: 20101027
  2. CISPLATIN [Suspect]
     Indication: GASTRIC CANCER
     Dosage: PERMANENTLY DISCONTINUED
     Route: 042
     Dates: start: 20100824, end: 20101027
  3. MAREVAN [Concomitant]
     Dates: start: 20100813, end: 20101025
  4. FRAGMIN [Concomitant]
     Route: 042
     Dates: start: 20100813, end: 20100827
  5. FRAGMIN [Concomitant]
     Dosage: TDD: 5000U, FREQUENCY: QD
     Route: 042
     Dates: start: 20100827, end: 20101013
  6. FRAGMIN [Concomitant]
     Dosage: TDD: 12500U, FREQUENCY: QD
     Route: 042
     Dates: start: 20101029

REACTIONS (4)
  - BONE MARROW FAILURE [None]
  - HAEMORRHAGE [None]
  - INTESTINAL OBSTRUCTION [None]
  - THROMBOSIS [None]
